FAERS Safety Report 7431750-0 (Version None)
Quarter: 2011Q1

REPORT INFORMATION
  Report Type: 
  Country: None (occurrence: None)
  Receive Date: 20110302
  Receipt Date: 20101118
  Transmission Date: 20110831
  Serious: No
  Sender: FDA-Public Use
  Company Number: 022433

PATIENT
  Sex: Female
  Weight: 90.7 kg

DRUGS (6)
  1. ENTOCORT EC [Concomitant]
  2. ACIPHEX [Concomitant]
  3. C-VITAMIN [Concomitant]
  4. CIMZIA [Suspect]
     Indication: CROHN'S DISEASE
     Dosage: 400 MG 1X/4 WEEKS SUBCUTANEOUS
     Route: 058
     Dates: start: 20100205
  5. VITAMIN D [Concomitant]
  6. ATENOLOL [Concomitant]

REACTIONS (3)
  - ORAL HERPES [None]
  - URTICARIA [None]
  - RASH [None]
